FAERS Safety Report 8147128-0 (Version None)
Quarter: 2012Q1

REPORT INFORMATION
  Report Type: 
  Country: None (occurrence: None)
  Receive Date: 20120218
  Receipt Date: 20110117
  Transmission Date: 20120608
  Serious: No
  Sender: FDA-Public Use
  Company Number: US-ALLERGAN-1100653US

PATIENT
  Age: 64 Year
  Sex: Male

DRUGS (1)
  1. BOTOX COSMETIC [Suspect]
     Indication: SKIN WRINKLING
     Dosage: 32 UNITS, SINGLE
     Route: 030
     Dates: start: 20110114, end: 20110114

REACTIONS (5)
  - FATIGUE [None]
  - HEADACHE [None]
  - VOMITING [None]
  - SENSORY DISTURBANCE [None]
  - NAUSEA [None]
